FAERS Safety Report 7600482-8 (Version None)
Quarter: 2011Q2

REPORT INFORMATION
  Report Type: 
  Country: None (occurrence: None)
  Receive Date: 20110629
  Receipt Date: 20110615
  Transmission Date: 20111010
  Serious: Yes (Death, Other)
  Sender: FDA-Public Use
  Company Number: 2011MA007217

PATIENT
  Age: 50 Year
  Sex: Male

DRUGS (4)
  1. DIAZEPAM [Concomitant]
  2. TRAZODONE HCL [Concomitant]
  3. FLUOXETINE [Concomitant]
  4. OXYCODONE HCL [Suspect]
     Indication: OVERDOSE
     Dosage: 5 MG

REACTIONS (3)
  - DRUG DEPENDENCE [None]
  - TOXICITY TO VARIOUS AGENTS [None]
  - DRUG ABUSE [None]
